FAERS Safety Report 4446310-3 (Version None)
Quarter: 2004Q3

REPORT INFORMATION
  Report Type: 
  Country: None (occurrence: None)
  Receive Date: 20040902
  Receipt Date: 20040818
  Transmission Date: 20050211
  Serious: Yes (Hospitalization)
  Sender: FDA-Public Use
  Company Number: B0343170A

PATIENT
  Age: 12 Year
  Sex: Male

DRUGS (3)
  1. EPIVIR [Suspect]
     Indication: HIV INFECTION
  2. EFAVIRENZ (EFAVIRENZ) [Suspect]
     Indication: HIV INFECTION
  3. STAVUDINE (STAVUDINE) [Suspect]
     Indication: HIV INFECTION

REACTIONS (17)
  - ASTHENIA [None]
  - ATAXIA [None]
  - BLOOD GLUCOSE DECREASED [None]
  - CEREBELLAR SYNDROME [None]
  - COMPUTERISED TOMOGRAM ABNORMAL [None]
  - DIZZINESS [None]
  - FACIAL PARESIS [None]
  - HEADACHE [None]
  - HEMIPARESIS [None]
  - JC VIRUS INFECTION [None]
  - MOVEMENT DISORDER [None]
  - NERVOUS SYSTEM DISORDER [None]
  - NYSTAGMUS [None]
  - PROGRESSIVE MULTIFOCAL LEUKOENCEPHALOPATHY [None]
  - PYREXIA [None]
  - VOMITING [None]
  - WHITE BLOOD CELL COUNT INCREASED [None]
